FAERS Safety Report 24740256 (Version 2)
Quarter: 2024Q4

REPORT INFORMATION
  Report Type: Spontaneous
  Country: US (occurrence: US)
  Receive Date: 20241216
  Receipt Date: 20241217
  Transmission Date: 20250115
  Serious: No
  Sender: JOHNSON AND JOHNSON
  Company Number: US-KENVUE-20241031767

PATIENT
  Age: 43 Year
  Sex: Female

DRUGS (6)
  1. TYLENOL [Suspect]
     Active Substance: ACETAMINOPHEN
     Indication: Headache
     Route: 065
  2. TYVASO DPI [Concomitant]
     Active Substance: TREPROSTINIL
     Indication: Pulmonary arterial hypertension
     Dosage: UNK
     Dates: start: 202306
  3. TYVASO DPI [Concomitant]
     Active Substance: TREPROSTINIL
     Dosage: 48 MICROGRAM, FOUR TIME A DAY
  4. TYVASO DPI [Concomitant]
     Active Substance: TREPROSTINIL
     Dosage: 48 MICROGRAM, FOUR TIME A DAY
  5. AMBRISENTAN [Concomitant]
     Active Substance: AMBRISENTAN
     Indication: Product used for unknown indication
     Route: 065
  6. AMBRISENTAN [Concomitant]
     Active Substance: AMBRISENTAN
     Route: 065

REACTIONS (1)
  - Drug ineffective [Unknown]
